FAERS Safety Report 16991968 (Version 2)
Quarter: 2019Q4

REPORT INFORMATION
  Report Type: Spontaneous
  Country: RU (occurrence: RU)
  Receive Date: 20191105
  Receipt Date: 20191209
  Transmission Date: 20200122
  Serious: Yes (Other)
  Sender: FDA-Public Use
  Company Number: RU-ROCHE-2451842

PATIENT
  Age: 28 Year
  Sex: Male

DRUGS (1)
  1. MABTHERA [Suspect]
     Active Substance: RITUXIMAB
     Indication: DIFFUSE LARGE B-CELL LYMPHOMA
     Route: 065
     Dates: start: 201007

REACTIONS (3)
  - Cystitis haemorrhagic [Recovered/Resolved]
  - BK virus infection [Unknown]
  - Drug ineffective [Unknown]
